FAERS Safety Report 21815889 (Version 1)
Quarter: 2023Q1

REPORT INFORMATION
  Report Type: Spontaneous
  Country: CA (occurrence: None)
  Receive Date: 20230104
  Receipt Date: 20230104
  Transmission Date: 20230417
  Serious: Yes (Other)
  Sender: FDA-Public Use
  Company Number: CA-PFIZER INC-202300001820

PATIENT
  Age: 70 Year
  Sex: Male

DRUGS (2)
  1. METHOTREXATE [Suspect]
     Active Substance: METHOTREXATE
     Indication: Product used for unknown indication
     Route: 065
  2. SORIATANE [Suspect]
     Active Substance: ACITRETIN
     Indication: Psoriasis
     Route: 048

REACTIONS (6)
  - Drug ineffective [Unknown]
  - Bacterial disease carrier [Unknown]
  - Bronchiectasis [Unknown]
  - Bronchopulmonary aspergillosis [Unknown]
  - Lung disorder [Unknown]
  - Psoriasis [Unknown]
